FAERS Safety Report 6128974-1 (Version None)
Quarter: 2009Q1

REPORT INFORMATION
  Report Type: 
  Country: None (occurrence: None)
  Receive Date: 20090324
  Receipt Date: 20090319
  Transmission Date: 20090719
  Serious: Yes (Death, Other)
  Sender: FDA-Public Use
  Company Number: PHHY2009BR10365

PATIENT
  Age: 68 Year
  Sex: Female

DRUGS (5)
  1. DIOVAN [Suspect]
     Indication: HYPERTENSION
     Dosage: 80 MG, QD
     Route: 048
     Dates: start: 20070101
  2. DIOVAN [Suspect]
     Dosage: 160 MG, BID
     Route: 048
  3. METFORMIN HYDROCHLORIDE [Concomitant]
     Indication: BLOOD GLUCOSE ABNORMAL
  4. DAONIL [Concomitant]
     Indication: BLOOD GLUCOSE ABNORMAL
  5. INSULIN [Concomitant]
     Indication: BLOOD GLUCOSE INCREASED

REACTIONS (5)
  - BLOOD GLUCOSE INCREASED [None]
  - BLOOD PRESSURE INADEQUATELY CONTROLLED [None]
  - BLOOD PRESSURE INCREASED [None]
  - CARDIAC FAILURE [None]
  - DYSPNOEA [None]
